FAERS Safety Report 16277459 (Version 2)
Quarter: 2019Q2

REPORT INFORMATION
  Report Type: Report from Study
  Country: CA (occurrence: CA)
  Receive Date: 20190506
  Receipt Date: 20190509
  Transmission Date: 20190711
  Serious: Yes (Other)
  Sender: FDA-Public Use
  Company Number: PHHY2018CA158293

PATIENT
  Age: 32 Year
  Sex: Female

DRUGS (5)
  1. COSENTYX [Suspect]
     Active Substance: SECUKINUMAB
     Dosage: 150 MG, QMO
     Route: 058
     Dates: start: 20190322
  2. COSENTYX [Suspect]
     Active Substance: SECUKINUMAB
     Dosage: 150 MG, QW
     Route: 058
     Dates: start: 20181121
  3. INDOCID [Concomitant]
     Active Substance: INDOMETHACIN
     Indication: PRODUCT USED FOR UNKNOWN INDICATION
     Dosage: 50 MG, TID
     Route: 048
     Dates: start: 201802
  4. COSENTYX [Suspect]
     Active Substance: SECUKINUMAB
     Indication: ANKYLOSING SPONDYLITIS
     Dosage: 150 MG, QW
     Route: 058
     Dates: start: 20181114
  5. COSENTYX [Suspect]
     Active Substance: SECUKINUMAB
     Dosage: 150 MG, QW
     Route: 058
     Dates: start: 20181128

REACTIONS (16)
  - Device malfunction [Unknown]
  - Arthralgia [Unknown]
  - Gastrointestinal disorder [Recovered/Resolved]
  - Diarrhoea [Unknown]
  - Dizziness [Unknown]
  - Influenza [Unknown]
  - Arthritis [Unknown]
  - Myalgia [Unknown]
  - Dyspepsia [Unknown]
  - Dehydration [Unknown]
  - Haematochezia [Unknown]
  - Weight decreased [Unknown]
  - Nausea [Unknown]
  - Labyrinthitis [Unknown]
  - Malaise [Unknown]
  - Sinusitis [Recovered/Resolved]

NARRATIVE: CASE EVENT DATE: 201811
